FAERS Safety Report 7870282 (Version 5)
Quarter: 2013Q4

REPORT INFORMATION
  Report Type: Report from Study
  Country: BR (occurrence: BR)
  Receive Date: 20110324
  Receipt Date: 20131106
  Transmission Date: 20140711
  Serious: Yes (Hospitalization, Other)
  Sender: FDA-Public Use
  Company Number: PHHO2011BR04603

PATIENT
  Age: 68 Year
  Sex: Male
  Weight: 73.6 kg

DRUGS (7)
  1. ERL 080A [Suspect]
     Indication: RENAL TRANSPLANT
     Dosage: 720 MG, BID
     Route: 048
     Dates: start: 20101206, end: 20101223
  2. ERL 080A [Suspect]
     Dates: start: 20101224
  3. COMPARATOR PROGRAF [Suspect]
     Indication: IMMUNOSUPPRESSION
     Dosage: 10 MG DAILY
     Route: 048
     Dates: start: 20101206
  4. COMPARATOR PROGRAF [Suspect]
     Dosage: 3 MG, UNK
     Dates: start: 20110613
  5. PREDNISONE [Suspect]
     Indication: IMMUNOSUPPRESSION
     Dosage: 40 MG DAILY
     Route: 048
     Dates: start: 20101206
  6. PREDNISONE [Suspect]
     Dosage: 10 MG, DAILY
     Route: 048
  7. FLUCONAZOLE [Concomitant]
     Indication: ORAL CANDIDIASIS

REACTIONS (11)
  - Sepsis [Recovered/Resolved]
  - Sinusitis [Recovered/Resolved]
  - Sinus headache [Recovered/Resolved]
  - Eye pain [Recovered/Resolved]
  - Parophthalmia [Recovered/Resolved]
  - Exophthalmos [Recovered/Resolved]
  - Obstruction [Recovered/Resolved]
  - Pyelocaliectasis [Recovering/Resolving]
  - Renal impairment [Recovered/Resolved]
  - Hypercalcaemia [Recovered/Resolved]
  - Kidney transplant rejection [Unknown]
